FAERS Safety Report 4339266-5 (Version None)
Quarter: 2004Q2

REPORT INFORMATION
  Report Type: 
  Country: None (occurrence: None)
  Receive Date: 20040412
  Receipt Date: 20040326
  Transmission Date: 20050107
  Serious: Yes (Death, Other)
  Sender: FDA-Public Use
  Company Number: 2003-BP-08353PF

PATIENT
  Age: 71 Year
  Sex: Male

DRUGS (1)
  1. SPIRIVA [Suspect]
     Dosage: 18 MCG (18 MCG, DAILY) IH
     Route: 055

REACTIONS (3)
  - CARDIAC FAILURE [None]
  - CHEST PAIN [None]
  - RESPIRATORY ARREST [None]
